FAERS Safety Report 4407756-2 (Version None)
Quarter: 2004Q3

REPORT INFORMATION
  Report Type: 
  Country: None (occurrence: None)
  Receive Date: 20040721
  Receipt Date: 20040712
  Transmission Date: 20050211
  Serious: Yes (Death, Hospitalization, Other)
  Sender: FDA-Public Use
  Company Number: 2004-03061

PATIENT
  Age: 48 Year
  Sex: Male

DRUGS (1)
  1. COLCHICINE (WATSON LABORATORIES) (COLCHICINE) TABLET, 0.6 MG [Suspect]
     Indication: GOUT
     Dosage: 18 MG,(30 TABLETS IN TOTAL), ORAL
     Route: 048

REACTIONS (3)
  - MULTI-ORGAN FAILURE [None]
  - OVERDOSE [None]
  - TOXIC EPIDERMAL NECROLYSIS [None]
